FAERS Safety Report 9535043 (Version 1)
Quarter: 2013Q3

REPORT INFORMATION
  Report Type: Spontaneous
  Country: AU (occurrence: AU)
  Receive Date: 20130918
  Receipt Date: 20130918
  Transmission Date: 20140515
  Serious: Yes (Death)
  Sender: FDA-Public Use
  Company Number: AU-PURDUE-USA-2013-0106353

PATIENT
  Age: 57 Year
  Sex: Male

DRUGS (1)
  1. MS CONTIN TABLETS [Suspect]
     Indication: PAIN
     Dosage: UNK, SEE TEXT
     Dates: start: 20090525, end: 20090528

REACTIONS (3)
  - Incorrect dose administered [Fatal]
  - Drug prescribing error [Fatal]
  - Pain [Unknown]
